FAERS Safety Report 5095300-9 (Version None)
Quarter: 2006Q3

REPORT INFORMATION
  Report Type: 
  Country: None (occurrence: None)
  Receive Date: 20060731
  Receipt Date: 20060417
  Transmission Date: 20061208
  Serious: No
  Sender: FDA-Public Use
  Company Number: 2006PV012205

PATIENT
  Age: 48 Year
  Sex: Female
  Weight: 83.9154 kg

DRUGS (5)
  1. BYETTA [Suspect]
     Indication: DIABETES MELLITUS NON-INSULIN-DEPENDENT
     Dosage: 10 MCG; BID; SC, ORAL
     Route: 048
     Dates: start: 20051001, end: 20051101
  2. BYETTA [Suspect]
     Indication: DIABETES MELLITUS NON-INSULIN-DEPENDENT
     Dosage: 10 MCG; BID; SC, ORAL
     Route: 048
     Dates: start: 20051101
  3. STARLIX [Concomitant]
  4. AMARYL [Concomitant]
  5. GLYSET [Concomitant]

REACTIONS (1)
  - WEIGHT DECREASED [None]
